FAERS Safety Report 21448839 (Version 8)
Quarter: 2023Q4

REPORT INFORMATION
  Report Type: Report from Study
  Country: US (occurrence: US)
  Receive Date: 20221013
  Receipt Date: 20231211
  Transmission Date: 20240110
  Serious: Yes (Other)
  Sender: FDA-Public Use
  Company Number: US-NOVARTISTESTPH-NVSC2022US226125

PATIENT
  Sex: Male

DRUGS (1)
  1. ENTRESTO [Suspect]
     Active Substance: SACUBITRIL\VALSARTAN
     Indication: Product used for unknown indication
     Dosage: 1 DOSAGE FORM, BID (24/26 MG)
     Route: 048

REACTIONS (7)
  - Cardiac failure congestive [Unknown]
  - Cardiac failure [Unknown]
  - Fatigue [Unknown]
  - Hypoacusis [Unknown]
  - Blood pressure increased [Unknown]
  - Neck pain [Unknown]
  - Asthenia [Unknown]
